FAERS Safety Report 15417443 (Version 1)
Quarter: 2018Q3

REPORT INFORMATION
  Report Type: Spontaneous
  Country: US (occurrence: US)
  Receive Date: 20180924
  Receipt Date: 20180924
  Transmission Date: 20181010
  Serious: No
  Sender: FDA-Public Use
  Company Number: US-AUROBINDO-AUR-APL-2018-011366

PATIENT
  Age: 85 Year
  Sex: Female
  Weight: 36 kg

DRUGS (1)
  1. ONDANSETRON HYDROCHLORIDE TABLETS 4 MG [Suspect]
     Active Substance: ONDANSETRON HYDROCHLORIDE
     Indication: VOMITING
     Dosage: 4 MILLIGRAM EVERY 8 HOURS
     Dates: start: 20180226, end: 20180228

REACTIONS (2)
  - Pruritus [Unknown]
  - Drug ineffective [Unknown]

NARRATIVE: CASE EVENT DATE: 20180226
